FAERS Safety Report 8205919 (Version 3)
Quarter: 2014Q1

REPORT INFORMATION
  Report Type: Spontaneous
  Country: JP (occurrence: JP)
  Receive Date: 20111028
  Receipt Date: 20140210
  Transmission Date: 20141002
  Serious: Yes (Life-Threatening)
  Sender: FDA-Public Use
  Company Number: JP-PFIZER INC-2011263157

PATIENT
  Age: 60 Year
  Sex: Female

DRUGS (3)
  1. JZOLOFT [Suspect]
     Indication: DEPRESSION
     Dosage: 25 MG, DAILY
     Route: 048
  2. JZOLOFT [Suspect]
     Dosage: 50 MG, DAILY
  3. JZOLOFT [Suspect]
     Dosage: 25 MG, DAILY

REACTIONS (2)
  - Activation syndrome [Recovering/Resolving]
  - Suicide attempt [Recovering/Resolving]
